FAERS Safety Report 7429836-X (Version None)
Quarter: 2011Q2

REPORT INFORMATION
  Report Type: 
  Country: None (occurrence: None)
  Receive Date: 20110421
  Receipt Date: 20110413
  Transmission Date: 20111010
  Serious: Yes (Other)
  Sender: FDA-Public Use
  Company Number: US-JNJFOC-20110406717

PATIENT
  Sex: Female
  Weight: 46.27 kg

DRUGS (4)
  1. EVISTA [Concomitant]
     Indication: OSTEOPOROSIS
     Route: 048
  2. LEVAQUIN [Suspect]
     Indication: COUGH
     Route: 048
  3. ENALAPRIL MALEATE [Concomitant]
     Indication: HYPERTENSION
     Route: 048
  4. STATIN MEDICATION [Concomitant]
     Indication: BLOOD CHOLESTEROL INCREASED
     Route: 048

REACTIONS (3)
  - CHEST PAIN [None]
  - GAIT DISTURBANCE [None]
  - INFLUENZA LIKE ILLNESS [None]
